FAERS Safety Report 9933350 (Version 1)
Quarter: 2014Q1

REPORT INFORMATION
  Report Type: Report from Study
  Country: US (occurrence: US)
  Receive Date: 20140228
  Receipt Date: 20140228
  Transmission Date: 20141002
  Serious: No
  Sender: FDA-Public Use
  Company Number: US-MYLANLABS-2013S1006191

PATIENT
  Age: 15 Year
  Sex: Female
  Weight: 47.17 kg

DRUGS (5)
  1. CLARAVIS [Suspect]
     Indication: ACNE
     Route: 048
     Dates: start: 20121109
  2. AMNESTEEM CAPSULES [Suspect]
     Indication: ACNE
     Route: 048
  3. CLARAVIS [Suspect]
     Indication: ACNE
     Route: 048
  4. AMNESTEEM CAPSULES [Suspect]
     Indication: ACNE
     Route: 048
     Dates: end: 20130228
  5. ZOLOFT [Concomitant]
     Indication: DEPRESSION

REACTIONS (2)
  - Depression [Recovered/Resolved]
  - Lip dry [Recovered/Resolved]
